FAERS Safety Report 4393241-3 (Version None)
Quarter: 2004Q3

REPORT INFORMATION
  Report Type: 
  Country: None (occurrence: None)
  Receive Date: 20040702
  Receipt Date: 20040621
  Transmission Date: 20050211
  Serious: Yes (Disabling)
  Sender: FDA-Public Use
  Company Number: SE-JNJFOC-20040604892

PATIENT
  Sex: Male

DRUGS (1)
  1. REMICADE [Suspect]
     Indication: CROHN'S DISEASE
     Dosage: INTRAVENOUS
     Route: 042
     Dates: start: 20020101, end: 20020101

REACTIONS (4)
  - ANAL FISTULA [None]
  - ANAL ULCER [None]
  - HODGKIN'S DISEASE [None]
  - WEIGHT DECREASED [None]
